FAERS Safety Report 14097140 (Version 1)
Quarter: 2017Q4

REPORT INFORMATION
  Report Type: Other
  Country: DE (occurrence: DE)
  Receive Date: 20171017
  Receipt Date: 20171017
  Transmission Date: 20180321
  Serious: Yes (Hospitalization, Other)
  Sender: FDA-Public Use
  Company Number: DE-DEXPHARM-20171370

PATIENT
  Age: 49 Year
  Sex: Male

DRUGS (4)
  1. TRADITIONAL CHINESE MEDICINE [Suspect]
     Active Substance: HERBALS\HOMEOPATHICS
  2. OMEPRAZOLE. [Suspect]
     Active Substance: OMEPRAZOLE
  3. MESALAZIN [Suspect]
     Active Substance: MESALAMINE
  4. CORTISON [Suspect]
     Active Substance: CORTISONE ACETATE

REACTIONS (2)
  - Drug interaction [Unknown]
  - Transaminases increased [Unknown]
